FAERS Safety Report 8776162 (Version 2)
Quarter: 2012Q4

REPORT INFORMATION
  Report Type: 
  Country: GB (occurrence: GB)
  Receive Date: 20120910
  Receipt Date: 20121112
  Transmission Date: 20130627
  Serious: Yes (Other)
  Sender: FDA-Public Use
  Company Number: GB-GLAXOSMITHKLINE-B0826218A

PATIENT
  Sex: Female
  Weight: 102 kg

DRUGS (4)
  1. MALARONE [Suspect]
     Indication: MALARIA PROPHYLAXIS
     Dosage: 1TAB Per day
     Route: 048
     Dates: start: 20120610, end: 20120807
  2. CERAZETTE [Suspect]
     Indication: CONTRACEPTION
     Dosage: 75MCG Per day
     Route: 048
     Dates: start: 20120315, end: 20120821
  3. NORETHISTERONE [Suspect]
     Indication: CONTRACEPTION
     Dosage: 5MG Three times per day
     Route: 048
     Dates: start: 20120722
  4. HYDROCORTISONE [Suspect]
     Indication: MOUTH ULCERATION
     Dosage: 2.5MG Four times per day
     Route: 002
     Dates: start: 20120622

REACTIONS (2)
  - Pregnancy on oral contraceptive [Unknown]
  - Exposure during pregnancy [Unknown]
